FAERS Safety Report 6929257-X (Version None)
Quarter: 2010Q3

REPORT INFORMATION
  Report Type: 
  Country: None (occurrence: None)
  Receive Date: 20100812
  Receipt Date: 20100806
  Transmission Date: 20110219
  Serious: Yes (Death, Hospitalization)
  Sender: FDA-Public Use
  Company Number: 2010US003164

PATIENT
  Age: 68 Year
  Sex: Male

DRUGS (11)
  1. PROGRAF [Suspect]
     Indication: LIVER TRANSPLANT
     Dosage: 0.5 MG, UID/QD, ORAL
     Route: 048
     Dates: start: 20090521
  2. METHADONE HCL [Concomitant]
  3. CARAFATE [Concomitant]
  4. MVI (VITAMINS NOS) [Concomitant]
  5. LOPRESSOR [Concomitant]
  6. NEXIUM IV [Concomitant]
  7. LACTULOSE [Concomitant]
  8. ACTIGALL [Concomitant]
  9. BACTRIM [Concomitant]
  10. PROTONIX [Concomitant]
  11. TAMSULOSIN HCL [Concomitant]

REACTIONS (1)
  - BACTERIAL SEPSIS [None]
